FAERS Safety Report 5902668-7 (Version None)
Quarter: 2008Q3

REPORT INFORMATION
  Report Type: 
  Country: None (occurrence: None)
  Receive Date: 20080929
  Receipt Date: 20080929
  Transmission Date: 20090109
  Serious: No
  Sender: FDA-Public Use
  Company Number: None

PATIENT
  Sex: Male
  Weight: 68.0396 kg

DRUGS (2)
  1. LIPITOR [Suspect]
     Indication: BLOOD CHOLESTEROL
     Dosage: 20 MG DAILY ORAL
     Route: 048
     Dates: start: 20070520, end: 20080115
  2. CIPRO [Suspect]
     Indication: DIVERTICULITIS
     Dosage: 5 ML. DAILY ORAL
     Route: 048
     Dates: start: 20080208, end: 20080215

REACTIONS (5)
  - DEPRESSION [None]
  - DIVERTICULITIS [None]
  - DYSPNOEA [None]
  - FATIGUE [None]
  - MUSCULAR WEAKNESS [None]
